FAERS Safety Report 24743809 (Version 1)
Quarter: 2024Q4

REPORT INFORMATION
  Report Type: Spontaneous
  Country: FR (occurrence: FR)
  Receive Date: 20241217
  Receipt Date: 20241217
  Transmission Date: 20250115
  Serious: Yes (Other)
  Sender: RANBAXY
  Company Number: FR-SUN PHARMACEUTICAL INDUSTRIES LTD-2024RR-484506

PATIENT
  Age: 71 Year
  Sex: Female

DRUGS (4)
  1. KETOPROFEN [Suspect]
     Active Substance: KETOPROFEN
     Indication: Pain
     Dosage: 1 DOSAGE FORM
     Route: 048
     Dates: start: 20240926, end: 20240928
  2. MORPHINE [Suspect]
     Active Substance: MORPHINE
     Indication: Cancer pain
     Dosage: 1 DOSAGE FORM
     Route: 048
     Dates: start: 20240926, end: 20241002
  3. LOVENOX [Suspect]
     Active Substance: ENOXAPARIN SODIUM
     Indication: Thrombosis prophylaxis
     Dosage: 1 DOSAGE FORM
     Route: 058
     Dates: start: 20240926, end: 20240929
  4. AUGMENTIN [Suspect]
     Active Substance: AMOXICILLIN\CLAVULANATE POTASSIUM
     Indication: Antibiotic therapy
     Dosage: 1 DOSAGE FORM
     Route: 065
     Dates: start: 20240926, end: 20240927

REACTIONS (1)
  - Acute generalised exanthematous pustulosis [Recovered/Resolved]

NARRATIVE: CASE EVENT DATE: 20240929
